FAERS Safety Report 7758828-6 (Version None)
Quarter: 2011Q3

REPORT INFORMATION
  Report Type: 
  Country: None (occurrence: None)
  Receive Date: 20110825
  Receipt Date: 20110726
  Transmission Date: 20111222
  Serious: Yes (Other)
  Sender: FDA-Public Use
  Company Number: 328686

PATIENT
  Age: 58 Year
  Sex: Female
  Weight: 85.7 kg

DRUGS (7)
  1. PAXIL [Concomitant]
  2. FISH OIL (FISH OIL) [Concomitant]
  3. VICTOZA [Suspect]
     Indication: TYPE 2 DIABETES MELLITUS
     Dosage: 1.2 MG, QD, SUBCUTANEOUS
     Route: 058
     Dates: start: 20101014, end: 20110414
  4. VICTOZA [Suspect]
     Indication: WEIGHT CONTROL
     Dosage: 1.2 MG, QD, SUBCUTANEOUS
     Route: 058
     Dates: start: 20101014, end: 20110414
  5. LEVEMIR [Concomitant]
  6. PRAVACHOL (PRAVASTATIN SODUM) [Concomitant]
  7. GLUMETZA [Concomitant]

REACTIONS (2)
  - WEIGHT INCREASED [None]
  - PANCREATITIS ACUTE [None]
